FAERS Safety Report 5173739-0 (Version None)
Quarter: 2006Q4

REPORT INFORMATION
  Report Type: 
  Country: None (occurrence: None)
  Receive Date: 20061214
  Receipt Date: 20061211
  Transmission Date: 20070319
  Serious: Yes (Life-Threatening)
  Sender: FDA-Public Use
  Company Number: 2006CG02022

PATIENT
  Age: 54 Year
  Sex: Female
  Weight: 43 kg

DRUGS (5)
  1. XYLOCAINE [Suspect]
     Indication: LOCAL ANAESTHESIA
     Route: 042
     Dates: start: 20060817, end: 20060817
  2. FLUOROURACIL [Concomitant]
     Indication: LIP AND/OR ORAL CAVITY CANCER
     Dosage: 400 MG/M2/DAY, TWO TO FIVE DAYS PER CYCLES, EVERY THREE WEEKS
     Route: 042
     Dates: start: 20060811, end: 20060825
  3. FLUOROURACIL [Concomitant]
     Indication: PHARYNGEAL NEOPLASM
     Dosage: 400 MG/M2/DAY, TWO TO FIVE DAYS PER CYCLES, EVERY THREE WEEKS
     Route: 042
     Dates: start: 20060811, end: 20060825
  4. CISPLATIN [Concomitant]
     Indication: LIP AND/OR ORAL CAVITY CANCER
     Dosage: 25 MG TWO TO FIVE DAYS PER CYCLES, EVERY TWO TO THREE WEEKS
     Route: 042
     Dates: start: 20060811, end: 20060825
  5. CISPLATIN [Concomitant]
     Indication: PHARYNGEAL NEOPLASM
     Dosage: 25 MG TWO TO FIVE DAYS PER CYCLES, EVERY TWO TO THREE WEEKS
     Route: 042
     Dates: start: 20060811, end: 20060825

REACTIONS (2)
  - CEREBRAL ISCHAEMIA [None]
  - CONVULSION [None]
